FAERS Safety Report 8111174-3 (Version None)
Quarter: 2012Q1

REPORT INFORMATION
  Report Type: 
  Country: None (occurrence: None)
  Receive Date: 20120203
  Receipt Date: 20110601
  Transmission Date: 20120608
  Serious: No
  Sender: FDA-Public Use
  Company Number: US-GLAXOSMITHKLINE-A0929884A

PATIENT
  Age: 58 Year
  Sex: Female

DRUGS (7)
  1. LAMICTAL [Suspect]
     Indication: DEPRESSED MOOD
     Dosage: 300MG PER DAY
     Route: 048
     Dates: start: 20110531
  2. HUMALOG [Concomitant]
  3. LISINOPRIL [Concomitant]
  4. BUPROPION HYDROCHLORIDE [Concomitant]
  5. LANTUS [Concomitant]
  6. ENABLEX [Concomitant]
  7. PROZAC [Concomitant]

REACTIONS (2)
  - RASH PRURITIC [None]
  - RASH [None]
